FAERS Safety Report 23617243 (Version 2)
Quarter: 2024Q1

REPORT INFORMATION
  Report Type: Spontaneous
  Country: US (occurrence: US)
  Receive Date: 20240311
  Receipt Date: 20240315
  Transmission Date: 20240409
  Serious: No
  Sender: FDA-Public Use
  Company Number: US-BIOVITRUM-2024-US-003805

PATIENT
  Age: 1 Year
  Sex: Male
  Weight: 8.16 kg

DRUGS (12)
  1. SYNAGIS [Suspect]
     Active Substance: PALIVIZUMAB
     Indication: Premature baby
     Dosage: ONCE A MONTH
     Route: 030
  2. SYNAGIS [Suspect]
     Active Substance: PALIVIZUMAB
     Indication: Low birth weight baby
  3. SYNAGIS [Suspect]
     Active Substance: PALIVIZUMAB
     Indication: Patent ductus arteriosus
  4. SYNAGIS [Suspect]
     Active Substance: PALIVIZUMAB
     Indication: Essential hypertension
  5. SYNAGIS [Suspect]
     Active Substance: PALIVIZUMAB
     Indication: Atrial septal defect
  6. SYNAGIS [Suspect]
     Active Substance: PALIVIZUMAB
     Indication: Neonatal respiratory distress syndrome
  7. SYNAGIS [Suspect]
     Active Substance: PALIVIZUMAB
     Indication: Gastrooesophageal reflux disease
  8. SYNAGIS [Suspect]
     Active Substance: PALIVIZUMAB
     Indication: Rheumatic heart disease
  9. SYNAGIS [Suspect]
     Active Substance: PALIVIZUMAB
     Indication: Umbilical hernia
  10. SYNAGIS [Suspect]
     Active Substance: PALIVIZUMAB
     Indication: Feeding disorder
  11. ALBUTEROL SULFATE [Concomitant]
     Active Substance: ALBUTEROL SULFATE
     Indication: Product used for unknown indication
  12. VITAMINS [Concomitant]
     Active Substance: VITAMINS
     Indication: Product used for unknown indication
     Dosage: 9MG/15ML LIQUID

REACTIONS (2)
  - Nasopharyngitis [Unknown]
  - Pyrexia [Recovered/Resolved]

NARRATIVE: CASE EVENT DATE: 20240304
